FAERS Safety Report 6308370-4 (Version None)
Quarter: 2009Q3

REPORT INFORMATION
  Report Type: 
  Country: None (occurrence: None)
  Receive Date: 20090813
  Receipt Date: 20090810
  Transmission Date: 20100115
  Serious: Yes (Hospitalization, Other)
  Sender: FDA-Public Use
  Company Number: SEWYE483317APR07

PATIENT
  Sex: Female

DRUGS (14)
  1. EFFEXOR [Suspect]
     Indication: DEPRESSION
     Route: 048
     Dates: start: 19991201, end: 20060301
  2. TOLVON [Concomitant]
     Dosage: UNKNOWN
     Dates: start: 19991201, end: 20010301
  3. MARVELON [Concomitant]
     Dosage: UNKNOWN
     Dates: start: 20010301, end: 20010901
  4. NOZINAN [Concomitant]
     Dosage: UNKNOWN
     Dates: start: 20010301, end: 20040301
  5. PARACETAMOL [Concomitant]
     Dosage: UNKNOWN
     Dates: start: 19991201, end: 19991201
  6. METRONIDAZOLE [Concomitant]
     Dosage: UNKNOWN
     Dates: start: 20040601, end: 20040601
  7. IMOZOP [Concomitant]
     Dosage: UNKNOWN
     Dates: start: 19991201, end: 20040901
  8. ALOPAM [Concomitant]
     Dosage: UNKNOWN
     Dates: start: 19991201
  9. RISPERDAL [Concomitant]
     Dosage: UNKNOWN
     Dates: start: 20010301, end: 20050301
  10. ZELDOX [Concomitant]
     Dosage: UNKNOWN
     Dates: start: 20030901, end: 20040301
  11. NIZAX [Concomitant]
     Dosage: UNKNOWN
     Dates: start: 20030601, end: 20040301
  12. AMPICILLIN [Concomitant]
     Dosage: UNKNOWN
     Dates: start: 20040601, end: 20040601
  13. ZOLOFT [Concomitant]
     Dosage: UNKNOWN
     Dates: start: 19990901, end: 19991201
  14. IMOVANE [Concomitant]
     Dosage: UNKNOWN
     Dates: start: 19991201, end: 19991201

REACTIONS (2)
  - SUICIDAL IDEATION [None]
  - SUICIDE ATTEMPT [None]
